FAERS Safety Report 20876608 (Version 1)
Quarter: 2022Q2

REPORT INFORMATION
  Report Type: Spontaneous
  Country: US (occurrence: None)
  Receive Date: 20220525
  Receipt Date: 20220525
  Transmission Date: 20220721
  Serious: No
  Sender: FDA-Public Use
  Company Number: None

PATIENT
  Age: 16 Year
  Sex: Male

DRUGS (1)
  1. HUMIRA [Suspect]
     Active Substance: ADALIMUMAB
     Indication: Colitis ulcerative
     Dosage: 80 MG  EVERY 14 DAYS SUBCUTANEOUSLY?
     Route: 058
     Dates: start: 20220331

REACTIONS (2)
  - Wrong technique in device usage process [None]
  - Syringe issue [None]

NARRATIVE: CASE EVENT DATE: 20220520
